FAERS Safety Report 23930656 (Version 1)
Quarter: 2024Q2

REPORT INFORMATION
  Report Type: Spontaneous
  Country: US (occurrence: US)
  Receive Date: 20240603
  Receipt Date: 20240603
  Transmission Date: 20240716
  Serious: Yes (Hospitalization)
  Sender: FDA-Public Use
  Company Number: US-Oxford Pharmaceuticals, LLC-2157679

PATIENT
  Age: 34 Year
  Sex: Male

DRUGS (1)
  1. BENZTROPINE MESYLATE [Suspect]
     Active Substance: BENZTROPINE MESYLATE
     Indication: Bipolar disorder

REACTIONS (2)
  - Gastrointestinal hypomotility [Unknown]
  - Drug interaction [Unknown]
